FAERS Safety Report 20506732 (Version 1)
Quarter: 2022Q1

REPORT INFORMATION
  Report Type: Spontaneous
  Country: US (occurrence: US)
  Receive Date: 20220223
  Receipt Date: 20220223
  Transmission Date: 20220423
  Serious: No
  Sender: FDA-Public Use
  Company Number: US-TEVA-2022-US-2008408

PATIENT
  Age: 39 Year
  Sex: Female
  Weight: 92.99 kg

DRUGS (16)
  1. CINQAIR [Suspect]
     Active Substance: RESLIZUMAB
     Indication: Asthma
     Route: 042
     Dates: start: 20220105
  2. CINQAIR [Suspect]
     Active Substance: RESLIZUMAB
     Route: 042
     Dates: start: 20220202
  3. ALBUTEROL SULFATE [Suspect]
     Active Substance: ALBUTEROL SULFATE
  4. TEGRETOL [Concomitant]
     Active Substance: CARBAMAZEPINE
  5. NAPROXEN [Concomitant]
     Active Substance: NAPROXEN
  6. ALBUTEROL [Concomitant]
     Active Substance: ALBUTEROL
     Dosage: BOTH THE MACHINE AND THE INHALER
  7. SYMBICORT [Concomitant]
     Active Substance: BUDESONIDE\FORMOTEROL FUMARATE DIHYDRATE
  8. BENZONATATE [Concomitant]
     Active Substance: BENZONATATE
  9. PROPRANOLOL [Concomitant]
     Active Substance: PROPRANOLOL HYDROCHLORIDE
  10. CETIRIZINE [Concomitant]
     Active Substance: CETIRIZINE HYDROCHLORIDE
  11. ONDANSETRON [Concomitant]
     Active Substance: ONDANSETRON
  12. METHOCARBAMOL [Concomitant]
     Active Substance: METHOCARBAMOL
  13. EPIPEN [Concomitant]
     Active Substance: EPINEPHRINE
  14. GABAPENTIN [Concomitant]
     Active Substance: GABAPENTIN
  15. PANTOPRAZOLE [Concomitant]
     Active Substance: PANTOPRAZOLE
  16. SUCRALFATE [Concomitant]
     Active Substance: SUCRALFATE

REACTIONS (10)
  - Immune system disorder [Not Recovered/Not Resolved]
  - Lung disorder [Unknown]
  - Dyspnoea [Unknown]
  - Impaired work ability [Not Recovered/Not Resolved]
  - Nausea [Not Recovered/Not Resolved]
  - Vomiting [Unknown]
  - Headache [Not Recovered/Not Resolved]
  - Mobility decreased [Unknown]
  - Fatigue [Not Recovered/Not Resolved]
  - Illness [Unknown]

NARRATIVE: CASE EVENT DATE: 20220101
